FAERS Safety Report 15941766 (Version 1)
Quarter: 2019Q1

REPORT INFORMATION
  Report Type: Spontaneous
  Country: US (occurrence: US)
  Receive Date: 20190210
  Receipt Date: 20190210
  Transmission Date: 20190417
  Serious: Yes (Life-Threatening, Hospitalization, Disabling, Other)
  Sender: FDA-Public Use
  Company Number: None

PATIENT
  Age: 67 Year
  Sex: Male
  Weight: 104.85 kg

DRUGS (8)
  1. HYDROZALINE [Concomitant]
  2. CARVEDILOL. [Concomitant]
     Active Substance: CARVEDILOL
  3. AMLODIPINE [Concomitant]
     Active Substance: AMLODIPINE BESYLATE
  4. KENALOG [Suspect]
     Active Substance: TRIAMCINOLONE ACETONIDE
     Indication: ARTHRITIS
     Dosage: ?          OTHER ROUTE:INJECTED INTO THE GROIN?
     Dates: start: 20181220, end: 20181220
  5. OXYCODONE [Concomitant]
     Active Substance: OXYCODONE
  6. ASPIRIN. [Concomitant]
     Active Substance: ASPIRIN
  7. KLONOPIN [Concomitant]
     Active Substance: CLONAZEPAM
  8. TURMERIC [Concomitant]
     Active Substance: HERBALS\TURMERIC

REACTIONS (1)
  - Thrombosis [None]

NARRATIVE: CASE EVENT DATE: 20181222
